FAERS Safety Report 6007138-6 (Version None)
Quarter: 2008Q4

REPORT INFORMATION
  Report Type: 
  Country: None (occurrence: None)
  Receive Date: 20081217
  Receipt Date: 20080128
  Transmission Date: 20090506
  Serious: No
  Sender: FDA-Public Use
  Company Number: US-ASTRAZENECA-2008UW01932

PATIENT
  Age: 84 Year
  Sex: Female
  Weight: 113.4 kg

DRUGS (7)
  1. CRESTOR [Suspect]
     Indication: BLOOD CHOLESTEROL INCREASED
     Route: 048
  2. BLOOD PRESSURE MEDICATION [Concomitant]
  3. ACTOS [Concomitant]
  4. CELEBREX [Concomitant]
  5. CALCIUM [Concomitant]
  6. POTASSIUM CHLORIDE [Concomitant]
  7. ASPIRIN [Concomitant]

REACTIONS (2)
  - MOBILITY DECREASED [None]
  - MYALGIA [None]
